FAERS Safety Report 9847733 (Version 1)
Quarter: 2014Q1

REPORT INFORMATION
  Report Type: Spontaneous
  Country: US (occurrence: US)
  Receive Date: 20140128
  Receipt Date: 20140128
  Transmission Date: 20141002
  Serious: Yes (Hospitalization)
  Sender: FDA-Public Use
  Company Number: US-BIOGENIDEC-2014BI005660

PATIENT
  Age: 45 Year
  Sex: Female

DRUGS (12)
  1. TECFIDERA [Suspect]
     Indication: MULTIPLE SCLEROSIS
     Route: 048
     Dates: start: 20130521
  2. AMPYRA [Concomitant]
  3. ASPIRIN EC [Concomitant]
  4. BACLOFEN [Concomitant]
  5. CELEXA [Concomitant]
  6. HYDROCHLOROTHIAZIDE [Concomitant]
  7. KLORCON [Concomitant]
  8. LEVOTHYROXINE SODIUM [Concomitant]
  9. NAPROXEN [Concomitant]
  10. NIASPAN [Concomitant]
  11. OXYBUTNIN CHLORIDE [Concomitant]
  12. TIZANIDINE HCI [Concomitant]

REACTIONS (1)
  - Intrathecal pump insertion [Unknown]
